FAERS Safety Report 20137392 (Version 1)
Quarter: 2021Q4

REPORT INFORMATION
  Report Type: Report from Study
  Country: NL (occurrence: NL)
  Receive Date: 20211201
  Receipt Date: 20211201
  Transmission Date: 20220303
  Serious: Yes (Hospitalization)
  Sender: FDA-Public Use
  Company Number: NL-SERVIER-S21013256

PATIENT

DRUGS (1)
  1. IVOSIDENIB [Suspect]
     Active Substance: IVOSIDENIB
     Indication: Cholangiocarcinoma
     Dosage: 500 MG, DAILY
     Route: 048
     Dates: start: 20210927, end: 20211008

REACTIONS (1)
  - Posterior reversible encephalopathy syndrome [Recovered/Resolved with Sequelae]

NARRATIVE: CASE EVENT DATE: 20211008
